FAERS Safety Report 13910576 (Version 1)
Quarter: 2017Q3

REPORT INFORMATION
  Report Type: Spontaneous
  Country: US (occurrence: US)
  Receive Date: 20170828
  Receipt Date: 20170828
  Transmission Date: 20171127
  Serious: No
  Sender: FDA-Public Use
  Company Number: US-CELGENEUS-USA-20170806660

PATIENT
  Sex: Male

DRUGS (1)
  1. OTEZLA [Suspect]
     Active Substance: APREMILAST
     Indication: PSORIATIC ARTHROPATHY
     Dosage: 10 MG/ 20 MG/ 30 MG
     Route: 048
     Dates: start: 20170721, end: 20170817

REACTIONS (2)
  - Crying [Unknown]
  - Depressed mood [Unknown]

NARRATIVE: CASE EVENT DATE: 2017
